FAERS Safety Report 9042768 (Version 1)
Quarter: 2013Q1

REPORT INFORMATION
  Report Type: Spontaneous
  Country: GR (occurrence: GR)
  Receive Date: 20130129
  Receipt Date: 20130129
  Transmission Date: 20140127
  Serious: Yes (Other)
  Sender: FDA-Public Use
  Company Number: GR-ABBOTT-13P-066-1042163-00

PATIENT
  Sex: 0

DRUGS (1)
  1. LEVO-THYROXINE [Suspect]
     Indication: MATERNAL EXPOSURE TIMING UNSPECIFIED
     Route: 064

REACTIONS (2)
  - Neonatal respiratory distress syndrome [Unknown]
  - Foetal exposure during pregnancy [Unknown]
